FAERS Safety Report 6822456-7 (Version None)
Quarter: 2010Q3

REPORT INFORMATION
  Report Type: 
  Country: None (occurrence: None)
  Receive Date: 20100708
  Receipt Date: 20100622
  Transmission Date: 20110219
  Serious: Yes (Disabling, Other)
  Sender: FDA-Public Use
  Company Number: US-BAYER-200610352BWH

PATIENT
  Age: 31 Year
  Sex: Male

DRUGS (1)
  1. LEVITRA [Suspect]
     Route: 048
     Dates: start: 20050701

REACTIONS (2)
  - DYSPHONIA [None]
  - PHARYNGEAL HAEMORRHAGE [None]
